FAERS Safety Report 6137561-0 (Version None)
Quarter: 2009Q1

REPORT INFORMATION
  Report Type: 
  Country: None (occurrence: None)
  Receive Date: 20090331
  Receipt Date: 20090320
  Transmission Date: 20090719
  Serious: Yes (Other)
  Sender: FDA-Public Use
  Company Number: DE-RANBAXY-2009RR-22928

PATIENT
  Age: 44 Year
  Sex: Female

DRUGS (1)
  1. CLINDAMYCIN HCL [Suspect]
     Indication: PERIODONTITIS
     Dosage: 600 MG, TID
     Route: 048
     Dates: start: 20090201

REACTIONS (1)
  - PARAESTHESIA [None]
